FAERS Safety Report 10144735 (Version 1)
Quarter: 2014Q2

REPORT INFORMATION
  Report Type: Spontaneous
  Country: US (occurrence: US)
  Receive Date: 20140430
  Receipt Date: 20140430
  Transmission Date: 20141212
  Serious: No
  Sender: FDA-Public Use
  Company Number: US-SANOFI-AVENTIS-2013SA068737

PATIENT
  Age: 52 Year
  Sex: Male

DRUGS (1)
  1. ENOXAPARIN SODIUM [Suspect]
     Dosage: TAKEN FROM : ABOUT 3 WEEKS AGO
     Route: 065
     Dates: start: 201306

REACTIONS (3)
  - Adverse event [Unknown]
  - Pain [Unknown]
  - Muscle spasms [Unknown]
